FAERS Safety Report 9511818 (Version 1)
Quarter: 2013Q1

REPORT INFORMATION
  Report Type: Spontaneous
  Country: US (occurrence: None)
  Receive Date: 20130305
  Receipt Date: 20130305
  Transmission Date: 20140127
  Serious: Yes (Other)
  Sender: FDA-Public Use
  Company Number: 163-21880-12103541

PATIENT
  Age: 65 Year
  Sex: Male
  Weight: 83.92 kg

DRUGS (16)
  1. REVLIMID [Suspect]
     Indication: LYMPHOMA
     Dosage: 5 MG, 1 IN 1 D, PO
     Route: 048
     Dates: start: 20120725
  2. ASPIRIN (ACETYLSALICYLIC ACID) (UNKNOWN) (ACETYLSALICYLIC ACID) [Concomitant]
  3. B COMPLEX (BECOSYM FORTE) (UNKNOWN) [Concomitant]
  4. CALCIUM + D (CALCIUM D3 ^STADA^) (UNKNOWN) [Concomitant]
  5. CRESTOR (RSUVASTATIN) (UNKNOWN) [Concomitant]
  6. IMODIUM (LOPERAMIDE HYDROCHLORIDE) (UNKNOWN) [Concomitant]
  7. LORAZEPAM (LORAZEPAM) (UNKNOWN) [Concomitant]
  8. MAGNESIUM (MAGNESIUM) (UNKNOWN) [Concomitant]
  9. MEGACE (MEGETROL ACETATE) (UNKNOWN) [Concomitant]
  10. MEPRON (ATOVAQUONE) (UNKNOWN) [Concomitant]
  11. NASACORT (TRIAMCINOLONE ACETONIDE) (UNKNOWN) [Concomitant]
  12. NOXAFIL (POSACONAZOLE) (UNKNOWN) [Concomitant]
  13. REFRESH EYE (CARMELLOSE SODIUM) (UNKNOWN) [Concomitant]
  14. STOOL SOFTENER (DOCUSATE SODIUM) (UNKNOWN) [Concomitant]
  15. TACROLIMUS (TACROLIMUS) (UNKNOWN) [Concomitant]
  16. VALTREX (VALACICLOVIR HYDROCLORIDE) (UNKNOWN) [Concomitant]

REACTIONS (2)
  - Cataract [None]
  - Cough [None]
